FAERS Safety Report 14609781 (Version 1)
Quarter: 2018Q1

REPORT INFORMATION
  Report Type: Spontaneous
  Country: IT (occurrence: IT)
  Receive Date: 20180307
  Receipt Date: 20180307
  Transmission Date: 20180509
  Serious: Yes (Life-Threatening)
  Sender: FDA-Public Use
  Company Number: IT-BAYER-2018-038586

PATIENT
  Age: 23 Year
  Sex: Male
  Weight: 50 kg

DRUGS (4)
  1. AMIKACIN [Suspect]
     Active Substance: AMIKACIN
     Indication: LYMPH NODE TUBERCULOSIS
     Dosage: 750 MG, QD
     Route: 042
     Dates: start: 20180211, end: 20180212
  2. MOXIFLOXACIN ORAL [Suspect]
     Active Substance: MOXIFLOXACIN
     Indication: LYMPH NODE TUBERCULOSIS
     Dosage: 400 MG, QD
     Route: 048
     Dates: start: 20180209, end: 20180212
  3. ETHAMBUTOL [Suspect]
     Active Substance: ETHAMBUTOL HYDROCHLORIDE
     Indication: LYMPH NODE TUBERCULOSIS
     Dosage: 800 MG, QD
     Route: 048
     Dates: start: 20180209, end: 20180212
  4. RIFATER [Suspect]
     Active Substance: ISONIAZID\PYRAZINAMIDE\RIFAMPIN
     Indication: LYMPH NODE TUBERCULOSIS
     Dosage: 6 DF, QD
     Route: 048
     Dates: start: 20180209, end: 20180212

REACTIONS (1)
  - Acute hepatic failure [Recovering/Resolving]

NARRATIVE: CASE EVENT DATE: 20180213
